FAERS Safety Report 11044484 (Version 1)
Quarter: 2015Q2

REPORT INFORMATION
  Report Type: Spontaneous
  Country: US (occurrence: None)
  Receive Date: 20150416
  Receipt Date: 20150416
  Transmission Date: 20150821
  Serious: No
  Sender: FDA-Public Use
  Company Number: None

PATIENT

DRUGS (1)
  1. GABLOFEN [Suspect]
     Active Substance: BACLOFEN
     Dosage: STRENGTH: 2,000 MCG/ML   DOSAGE FORM: INJECTABLE
     Route: 039

REACTIONS (4)
  - Physical product label issue [None]
  - Product label issue [None]
  - Product quality issue [None]
  - Circumstance or information capable of leading to medication error [None]
